FAERS Safety Report 17765702 (Version 1)
Quarter: 2020Q2

REPORT INFORMATION
  Report Type: Spontaneous
  Country: US (occurrence: US)
  Receive Date: 20200508
  Receipt Date: 20200508
  Transmission Date: 20200714
  Serious: Yes (Hospitalization)
  Sender: FDA-Public Use
  Company Number: None

PATIENT
  Age: 71 Year
  Sex: Female

DRUGS (24)
  1. TADALAFIL. [Concomitant]
     Active Substance: TADALAFIL
  2. CITALOPRAM [Concomitant]
     Active Substance: CITALOPRAM HYDROBROMIDE
  3. VENOFER [Concomitant]
     Active Substance: IRON SUCROSE
  4. GENTEAL OPHT DROP [Concomitant]
  5. FERROUS SULFATE. [Concomitant]
     Active Substance: FERROUS SULFATE
  6. COLACE [Concomitant]
     Active Substance: DOCUSATE SODIUM
  7. MVI [Concomitant]
     Active Substance: VITAMINS
  8. ANTACID [Concomitant]
     Active Substance: ALUMINUM HYDROXIDE\CALCIUM CARBONATE\DIMETHICONE\MAGNESIUM HYDROXIDE
  9. VITAMIN C [Concomitant]
     Active Substance: ASCORBIC ACID
  10. SENNA LAXATIVE [Concomitant]
     Active Substance: SENNOSIDES
  11. MILK OF MAGNESIA [Concomitant]
     Active Substance: MAGNESIUM HYDROXIDE
  12. TRIAMCINOLONE TOP OINT [Concomitant]
  13. TYLENOL [Concomitant]
     Active Substance: ACETAMINOPHEN
  14. PROMETHAZINE [Concomitant]
     Active Substance: PROMETHAZINE HYDROCHLORIDE
  15. XALATAN OPHT DROP [Concomitant]
  16. SUCRALFATE. [Concomitant]
     Active Substance: SUCRALFATE
  17. OXBUTYNIN [Concomitant]
  18. AMBRISENTAN 10MG TABLETS 30/BO: 10MG [Suspect]
     Active Substance: AMBRISENTAN
     Indication: PULMONARY ARTERIAL HYPERTENSION
     Route: 048
     Dates: start: 201307
  19. MOTRIN [Concomitant]
     Active Substance: IBUPROFEN
  20. ZYRTEC [Concomitant]
     Active Substance: CETIRIZINE HYDROCHLORIDE
  21. ZOFRAN [Concomitant]
     Active Substance: ONDANSETRON HYDROCHLORIDE
  22. PRUCALOPRIDE [Concomitant]
     Active Substance: PRUCALOPRIDE
  23. RABEPRAZOLE [Concomitant]
     Active Substance: RABEPRAZOLE
  24. COLCHICINE. [Concomitant]
     Active Substance: COLCHICINE

REACTIONS (3)
  - Vaginal infection [None]
  - Gastritis [None]
  - Impaired gastric emptying [None]

NARRATIVE: CASE EVENT DATE: 20200420
